FAERS Safety Report 17202343 (Version 6)
Quarter: 2020Q3

REPORT INFORMATION
  Report Type: Spontaneous
  Country: PR (occurrence: PR)
  Receive Date: 20191226
  Receipt Date: 20200716
  Transmission Date: 20201102
  Serious: No
  Sender: FDA-Public Use
  Company Number: PR-PFIZER INC-2019554579

PATIENT
  Age: 80 Year
  Sex: Female

DRUGS (3)
  1. XELJANZ [Suspect]
     Active Substance: TOFACITINIB CITRATE
     Dosage: 5 MG, DAILY (USES 1 TABLET XELJANZ TREATMENT INSTEAD OF 2 TABLETS DAILY)
  2. MTX [Concomitant]
     Active Substance: METHOTREXATE SODIUM
     Dosage: UNK
  3. XELJANZ [Suspect]
     Active Substance: TOFACITINIB CITRATE
     Indication: RHEUMATOID ARTHRITIS
     Dosage: 5 MG, 2X/DAY (1 TABLET BID (TWICE DAILY))
     Dates: start: 20191126

REACTIONS (10)
  - Rash [Unknown]
  - Blister [Unknown]
  - Rash macular [Recovering/Resolving]
  - Abdominal pain upper [Unknown]
  - Skin ulcer [Unknown]
  - Abdominal discomfort [Unknown]
  - Skin laceration [Unknown]
  - Dizziness [Unknown]
  - Mouth ulceration [Unknown]
  - Intentional product misuse [Unknown]
